FAERS Safety Report 10568360 (Version 2)
Quarter: 2015Q1

REPORT INFORMATION
  Report Type: Report from Study
  Country: US (occurrence: US)
  Receive Date: 20141106
  Receipt Date: 20150224
  Transmission Date: 20150720
  Serious: Yes (Hospitalization)
  Sender: FDA-Public Use
  Company Number: US-SA-2014SA148404

PATIENT
  Age: 69 Year
  Sex: Male
  Weight: 108.4 kg

DRUGS (12)
  1. BACLOFEN. [Concomitant]
     Active Substance: BACLOFEN
     Dosage: DOSE: AS REQUIRED
     Route: 048
  2. CENTRUM SILVER [Concomitant]
     Active Substance: VITAMINS
     Route: 048
     Dates: start: 2000
  3. COUMADIN [Concomitant]
     Active Substance: WARFARIN SODIUM
     Dosage: AS DIRECTED
     Route: 048
     Dates: start: 2009
  4. PREDNISONE. [Concomitant]
     Active Substance: PREDNISONE
     Route: 048
  5. CABAZITAXEL [Suspect]
     Active Substance: CABAZITAXEL
     Indication: PROSTATE CANCER METASTATIC
     Route: 042
     Dates: start: 20140917
  6. ALEVE [Concomitant]
     Active Substance: NAPROXEN SODIUM
     Dosage: DOSE: AS REQUIRED
     Route: 048
     Dates: start: 2009
  7. AZITHROMYCIN [Concomitant]
     Active Substance: AZITHROMYCIN ANHYDROUS
     Dates: start: 20140109
  8. LUPRON [Concomitant]
     Active Substance: LEUPROLIDE ACETATE
     Dosage: DOSE: 7.5 MG,1 IN 28 D
     Route: 058
     Dates: start: 2009
  9. ZOMETA [Concomitant]
     Active Substance: ZOLEDRONIC ACID
     Dosage: DOSE: 1 IN 90 D
     Route: 042
     Dates: start: 2009
  10. ANTINEOPLASTIC AGENTS [Suspect]
     Active Substance: UNSPECIFIED INGREDIENT
     Indication: PROSTATE CANCER METASTATIC
     Route: 065
  11. LEXAPRO [Concomitant]
     Active Substance: ESCITALOPRAM OXALATE
     Route: 048
     Dates: start: 2009
  12. ONDANSETRON [Concomitant]
     Active Substance: ONDANSETRON
     Dosage: MG, AS DIRECTED
     Route: 048

REACTIONS (1)
  - Myoclonus [Recovered/Resolved]

NARRATIVE: CASE EVENT DATE: 20141014
